FAERS Safety Report 4417996-4 (Version None)
Quarter: 2004Q3

REPORT INFORMATION
  Report Type: 
  Country: None (occurrence: None)
  Receive Date: 20040805
  Receipt Date: 20040712
  Transmission Date: 20050211
  Serious: Yes (Other)
  Sender: FDA-Public Use
  Company Number: 20040700338

PATIENT
  Sex: Female
  Weight: 56.246 kg

DRUGS (4)
  1. PHENERGAN [Suspect]
     Indication: BACK PAIN
     Dosage: 25 MG DAILY IM
     Route: 030
     Dates: start: 20040601, end: 20040601
  2. PHENERGAN [Suspect]
     Indication: MUSCLE SPASMS
     Dosage: 25 MG DAILY IM
     Route: 030
     Dates: start: 20040601, end: 20040601
  3. MORPHINE SULFATE [Concomitant]
  4. FLEXERIL [Concomitant]

REACTIONS (3)
  - DRUG EXPOSURE DURING PREGNANCY [None]
  - PREMATURE BABY [None]
  - PREMATURE LABOUR [None]
